FAERS Safety Report 7922510 (Version 2)
Quarter: 2013Q4

REPORT INFORMATION
  Report Type: Spontaneous
  Country: US (occurrence: US)
  Receive Date: 20110429
  Receipt Date: 20131224
  Transmission Date: 20140711
  Serious: No
  Sender: FDA-Public Use
  Company Number: US-ASTRAZENECA-2011SE03203

PATIENT
  Age: 53 Year
  Sex: Male
  Weight: 72.6 kg

DRUGS (3)
  1. NEXIUM [Suspect]
     Indication: GASTROOESOPHAGEAL REFLUX DISEASE
     Route: 048
     Dates: end: 201308
  2. LISINOPRIL [Suspect]
     Indication: BLOOD PRESSURE ABNORMAL
     Dosage: DAILY
     Route: 048
  3. OVER THE COUNTER MEDICATION [Concomitant]

REACTIONS (4)
  - Vomiting [Unknown]
  - Malaise [Unknown]
  - Nasopharyngitis [Unknown]
  - Drug dose omission [Unknown]
